FAERS Safety Report 7955057-8 (Version None)
Quarter: 2011Q4

REPORT INFORMATION
  Report Type: 
  Country: None (occurrence: None)
  Receive Date: 20111202
  Receipt Date: 20111129
  Transmission Date: 20120403
  Serious: No
  Sender: FDA-Public Use
  Company Number: US-PFIZER INC-2011292764

PATIENT
  Age: 44 Year
  Sex: Male

DRUGS (3)
  1. LYRICA [Suspect]
     Dosage: 75 MG
     Route: 048
     Dates: start: 20110901, end: 20110101
  2. CISPLATIN [Concomitant]
     Indication: NEOPLASM MALIGNANT
     Dosage: UNK
  3. PAXIL [Concomitant]
     Indication: NEOPLASM MALIGNANT
     Dosage: UNK

REACTIONS (1)
  - ERYTHEMA [None]
